FAERS Safety Report 15120941 (Version 5)
Quarter: 2019Q4

REPORT INFORMATION
  Report Type: Report from Study
  Country: US (occurrence: US)
  Receive Date: 20180709
  Receipt Date: 20191015
  Transmission Date: 20200122
  Serious: Yes (Other)
  Sender: FDA-Public Use
  Company Number: US-SA-2018SA132829

PATIENT
  Sex: Female

DRUGS (2)
  1. TERIFLUNOMIDE. [Suspect]
     Active Substance: TERIFLUNOMIDE
     Indication: MULTIPLE SCLEROSIS
     Dosage: 14 MG, QD
     Route: 048
     Dates: start: 20160601
  2. IBUPROFEN. [Suspect]
     Active Substance: IBUPROFEN

REACTIONS (13)
  - Anaemia [Unknown]
  - Blood iron decreased [Not Recovered/Not Resolved]
  - Depression [Unknown]
  - Weight increased [Unknown]
  - Fatigue [Not Recovered/Not Resolved]
  - Haemoglobin abnormal [Unknown]
  - Back pain [Unknown]
  - Thirst [Not Recovered/Not Resolved]
  - Discomfort [Not Recovered/Not Resolved]
  - Haematochezia [Unknown]
  - Back disorder [Unknown]
  - Gait inability [Unknown]
  - Neuralgia [Not Recovered/Not Resolved]
